FAERS Safety Report 8549473-3 (Version None)
Quarter: 2012Q3

REPORT INFORMATION
  Report Type: 
  Country: None (occurrence: None)
  Receive Date: 20120730
  Receipt Date: 20120716
  Transmission Date: 20120928
  Serious: Yes (Hospitalization)
  Sender: FDA-Public Use
  Company Number: DE-TEVA-349284GER

PATIENT
  Age: 73 Year
  Sex: Female

DRUGS (3)
  1. DOPAMINE HCL [Suspect]
     Indication: SEPTIC SHOCK
     Route: 065
  2. DOBUTAMINE HCL [Suspect]
     Indication: SEPTIC SHOCK
     Route: 042
  3. NITROGLYCERIN [Suspect]
     Indication: ANGINA PECTORIS
     Route: 060

REACTIONS (1)
  - CARDIOGENIC SHOCK [None]
